FAERS Safety Report 9540487 (Version 1)
Quarter: 2013Q3

REPORT INFORMATION
  Report Type: Spontaneous
  Country: BE (occurrence: BE)
  Receive Date: 20130920
  Receipt Date: 20130920
  Transmission Date: 20140515
  Serious: Yes (Death, Hospitalization)
  Sender: FDA-Public Use
  Company Number: BE-AMGEN-BELSP2013065319

PATIENT
  Sex: Male

DRUGS (3)
  1. XGEVA [Suspect]
     Indication: PROSTATE CANCER
     Route: 065
  2. CALCIUM [Concomitant]
     Dosage: 500 MG, UNK
  3. VITAMIN D                          /00107901/ [Concomitant]
     Dosage: 400 IU, UNK

REACTIONS (2)
  - Death [Fatal]
  - Gastric disorder [Unknown]
